FAERS Safety Report 19467555 (Version 1)
Quarter: 2021Q2

REPORT INFORMATION
  Report Type: Spontaneous
  Country: CN (occurrence: CN)
  Receive Date: 20210628
  Receipt Date: 20210628
  Transmission Date: 20210717
  Serious: Yes (Other)
  Sender: FDA-Public Use
  Company Number: CN-ROCHE-2854724

PATIENT
  Age: 34 Year
  Sex: Female

DRUGS (20)
  1. PERJETA [Suspect]
     Active Substance: PERTUZUMAB
     Indication: INVASIVE BREAST CARCINOMA
     Route: 065
     Dates: start: 20200615
  2. ANASTROZOLE. [Concomitant]
     Active Substance: ANASTROZOLE
     Dates: start: 20181013
  3. HERCEPTIN [Suspect]
     Active Substance: TRASTUZUMAB
     Indication: INVASIVE BREAST CARCINOMA
     Dosage: LOADING DOSE
     Route: 041
     Dates: start: 20171026
  4. HERCEPTIN [Suspect]
     Active Substance: TRASTUZUMAB
     Route: 041
     Dates: start: 20200615
  5. CARBOPLATIN. [Concomitant]
     Active Substance: CARBOPLATIN
     Indication: INVASIVE BREAST CARCINOMA
     Dates: start: 20171026
  6. PYROTINIB [Concomitant]
     Active Substance: PYROTINIB
     Indication: INVASIVE BREAST CARCINOMA
     Route: 048
     Dates: start: 20200830
  7. XELODA [Suspect]
     Active Substance: CAPECITABINE
     Route: 048
     Dates: start: 20200830
  8. DOCETAXEL. [Concomitant]
     Active Substance: DOCETAXEL
     Dates: start: 20180125, end: 20180614
  9. ZOLEDRONIC ACID [Concomitant]
     Active Substance: ZOLEDRONIC ACID
     Dates: start: 20180125, end: 20180614
  10. HERCEPTIN [Suspect]
     Active Substance: TRASTUZUMAB
     Route: 041
     Dates: start: 20181013
  11. XELODA [Suspect]
     Active Substance: CAPECITABINE
     Route: 048
     Dates: start: 201905, end: 202005
  12. HERCEPTIN [Suspect]
     Active Substance: TRASTUZUMAB
     Route: 041
     Dates: start: 20180620, end: 20180920
  13. DOCETAXEL. [Concomitant]
     Active Substance: DOCETAXEL
     Indication: INVASIVE BREAST CARCINOMA
     Dates: start: 20171026
  14. HERCEPTIN [Suspect]
     Active Substance: TRASTUZUMAB
     Route: 041
     Dates: start: 20180125, end: 20180614
  15. XELODA [Suspect]
     Active Substance: CAPECITABINE
     Indication: INVASIVE BREAST CARCINOMA
     Route: 048
     Dates: start: 20180125, end: 20180614
  16. XELODA [Suspect]
     Active Substance: CAPECITABINE
     Route: 048
     Dates: start: 20180620, end: 20180920
  17. ZOLEDRONIC ACID [Concomitant]
     Active Substance: ZOLEDRONIC ACID
     Dates: start: 20180620, end: 20180920
  18. GOSERELIN [Concomitant]
     Active Substance: GOSERELIN
     Dates: start: 20181013
  19. LAPATINIB [Concomitant]
     Active Substance: LAPATINIB
     Indication: INVASIVE BREAST CARCINOMA
     Route: 048
     Dates: start: 201905, end: 202005
  20. PACLITAXEL ALBUMIN [Concomitant]
     Active Substance: PACLITAXEL
     Indication: INVASIVE BREAST CARCINOMA
     Dates: start: 20200615

REACTIONS (2)
  - Anaemia [Unknown]
  - Myelosuppression [Unknown]

NARRATIVE: CASE EVENT DATE: 202006
